FAERS Safety Report 25533489 (Version 1)
Quarter: 2025Q3

REPORT INFORMATION
  Report Type: Spontaneous
  Country: GB (occurrence: GB)
  Receive Date: 20250709
  Receipt Date: 20250709
  Transmission Date: 20251021
  Serious: Yes (Other)
  Sender: AMGEN
  Company Number: GB-AMGEN-GBRSP2025132812

PATIENT
  Age: 54 Year
  Sex: Female
  Weight: 72 kg

DRUGS (1)
  1. ADALIMUMAB [Suspect]
     Active Substance: ADALIMUMAB
     Indication: Psoriatic arthropathy
     Dosage: UNK, QWK (ONCE A WEEK)
     Route: 065
     Dates: start: 2020

REACTIONS (1)
  - Electric shock sensation [Recovered/Resolved with Sequelae]

NARRATIVE: CASE EVENT DATE: 20200101
